FAERS Safety Report 15569467 (Version 7)
Quarter: 2019Q3

REPORT INFORMATION
  Report Type: Report from Study
  Country: DE (occurrence: DE)
  Receive Date: 20181031
  Receipt Date: 20190719
  Transmission Date: 20191004
  Serious: Yes (Other)
  Sender: FDA-Public Use
  Company Number: DE-BRISTOL-MYERS SQUIBB COMPANY-BMS-2017-071498

PATIENT
  Age: 71 Year
  Sex: Male

DRUGS (1)
  1. NIVOLUMAB [Suspect]
     Active Substance: NIVOLUMAB
     Indication: SQUAMOUS CELL CARCINOMA OF LUNG
     Dosage: 3 MG/KG, 240MG, Q2WK
     Route: 042
     Dates: start: 20170124, end: 20180926

REACTIONS (9)
  - Respiratory tract infection [Recovered/Resolved]
  - Swelling face [Recovered/Resolved]
  - Scleral hyperaemia [Recovered/Resolved]
  - Peripheral swelling [Recovered/Resolved]
  - Dyspnoea [Unknown]
  - Erythema [Recovered/Resolved]
  - Arthropod bite [Recovered/Resolved]
  - Neurodermatitis [Not Recovered/Not Resolved]
  - Skin exfoliation [Recovered/Resolved]

NARRATIVE: CASE EVENT DATE: 20170725
